FAERS Safety Report 25323208 (Version 1)
Quarter: 2025Q2

REPORT INFORMATION
  Report Type: Spontaneous
  Country: BG (occurrence: BG)
  Receive Date: 20250516
  Receipt Date: 20250516
  Transmission Date: 20250717
  Serious: Yes (Hospitalization)
  Sender: MACLEODS
  Company Number: BG-MLMSERVICE-20250501-PI495920-00200-1

PATIENT

DRUGS (1)
  1. LEVOTHYROXINE [Suspect]
     Active Substance: LEVOTHYROXINE
     Indication: Autoimmune thyroiditis
     Route: 065

REACTIONS (5)
  - Diffuse large B-cell lymphoma [Unknown]
  - Metastases to lymph nodes [Unknown]
  - Metastases to ovary [Unknown]
  - Metastases to peritoneum [Unknown]
  - Gastrointestinal lymphoma [Unknown]
